FAERS Safety Report 17742931 (Version 1)
Quarter: 2020Q2

REPORT INFORMATION
  Report Type: Report from Study
  Country: US (occurrence: US)
  Receive Date: 20200504
  Receipt Date: 20200504
  Transmission Date: 20200714
  Serious: Yes (Life-Threatening)
  Sender: FDA-Public Use
  Company Number: US-ROCHE-2594250

PATIENT

DRUGS (1)
  1. OCRELIZUMAB. [Suspect]
     Active Substance: OCRELIZUMAB
     Indication: MULTIPLE SCLEROSIS
     Route: 065

REACTIONS (15)
  - Encephalitis [Unknown]
  - Influenza [Unknown]
  - Herpes zoster [Unknown]
  - Pneumonia [Unknown]
  - Cellulitis [Unknown]
  - Appendicitis [Unknown]
  - Bacterial vulvovaginitis [Unknown]
  - Upper respiratory tract infection [Unknown]
  - Paronychia [Unknown]
  - Clostridium difficile infection [Unknown]
  - Otitis media [Unknown]
  - Urinary tract infection [Unknown]
  - Cholangitis [Unknown]
  - Oral herpes [Unknown]
  - Conjunctivitis bacterial [Unknown]
